FAERS Safety Report 4394108-7 (Version None)
Quarter: 2004Q3

REPORT INFORMATION
  Report Type: 
  Country: None (occurrence: None)
  Receive Date: 20040701
  Receipt Date: 20040617
  Transmission Date: 20050211
  Serious: Yes (Other)
  Sender: FDA-Public Use
  Company Number: 200410230BFR

PATIENT
  Age: 33 Month
  Sex: Male
  Weight: 20 kg

DRUGS (24)
  1. KOGENATE FS [Suspect]
     Indication: FACTOR VIII DEFICIENCY
     Dosage: 1000 IU, TOTAL DAILY, INTRAVENOUS; SEE IMAGE
     Route: 042
     Dates: start: 20031110, end: 20031121
  2. KOGENATE FS [Suspect]
     Indication: FACTOR VIII DEFICIENCY
     Dosage: 1000 IU, TOTAL DAILY, INTRAVENOUS; SEE IMAGE
     Route: 042
     Dates: start: 20040119, end: 20040319
  3. KOGENATE FS [Suspect]
     Indication: FACTOR VIII DEFICIENCY
     Dosage: 1000 IU, TOTAL DAILY, INTRAVENOUS; SEE IMAGE
     Route: 042
     Dates: start: 20040322, end: 20040402
  4. KOGENATE FS [Suspect]
     Indication: FACTOR VIII DEFICIENCY
     Dosage: 1000 IU, TOTAL DAILY, INTRAVENOUS; SEE IMAGE
     Route: 042
     Dates: start: 20040408, end: 20040409
  5. KOGENATE FS [Suspect]
     Indication: FACTOR VIII DEFICIENCY
     Dosage: 1000 IU, TOTAL DAILY, INTRAVENOUS; SEE IMAGE
     Route: 042
     Dates: start: 20040410, end: 20040411
  6. KOGENATE FS [Suspect]
     Indication: FACTOR VIII DEFICIENCY
     Dosage: 1000 IU, TOTAL DAILY, INTRAVENOUS; SEE IMAGE
     Route: 042
     Dates: start: 20040419, end: 20040503
  7. KOGENATE FS [Suspect]
     Indication: FACTOR VIII DEFICIENCY
     Dosage: 1000 IU, TOTAL DAILY, INTRAVENOUS; SEE IMAGE
     Route: 042
     Dates: start: 20031105
  8. KOGENATE FS [Suspect]
     Indication: FACTOR VIII DEFICIENCY
     Dosage: 1000 IU, TOTAL DAILY, INTRAVENOUS; SEE IMAGE
     Route: 042
     Dates: start: 20031107
  9. KOGENATE FS [Suspect]
     Indication: FACTOR VIII DEFICIENCY
     Dosage: 1000 IU, TOTAL DAILY, INTRAVENOUS; SEE IMAGE
     Route: 042
     Dates: start: 20040405
  10. KOGENATE FS [Suspect]
     Indication: FACTOR VIII DEFICIENCY
     Dosage: 1000 IU, TOTAL DAILY, INTRAVENOUS; SEE IMAGE
     Route: 042
     Dates: start: 20040406
  11. KOGENATE FS [Suspect]
     Indication: FACTOR VIII DEFICIENCY
     Dosage: 1000 IU, TOTAL DAILY, INTRAVENOUS; SEE IMAGE
     Route: 042
     Dates: start: 20040407
  12. KOGENATE FS [Suspect]
     Indication: FACTOR VIII DEFICIENCY
     Dosage: 1000 IU, TOTAL DAILY, INTRAVENOUS; SEE IMAGE
     Route: 042
     Dates: start: 20040412
  13. KOGENATE FS [Suspect]
     Indication: FACTOR VIII DEFICIENCY
     Dosage: 1000 IU, TOTAL DAILY, INTRAVENOUS; SEE IMAGE
     Route: 042
     Dates: start: 20040416
  14. KOGENATE FS [Suspect]
     Indication: FACTOR VIII DEFICIENCY
     Dosage: 1000 IU, TOTAL DAILY, INTRAVENOUS; SEE IMAGE
     Route: 042
     Dates: start: 20040504
  15. KOGENATE FS [Suspect]
     Indication: FACTOR VIII DEFICIENCY
     Dosage: 1000 IU, TOTAL DAILY, INTRAVENOUS; SEE IMAGE
     Route: 042
     Dates: start: 20040506
  16. KOGENATE FS [Suspect]
     Indication: FACTOR VIII DEFICIENCY
     Dosage: 1000 IU, TOTAL DAILY, INTRAVENOUS; SEE IMAGE
     Route: 042
     Dates: start: 20040517
  17. KOGENATE FS [Suspect]
     Indication: FACTOR VIII DEFICIENCY
     Dosage: 1000 IU, TOTAL DAILY, INTRAVENOUS; SEE IMAGE
     Route: 042
     Dates: start: 20040601
  18. KOGENATE FS [Suspect]
  19. KOGENATE FS [Suspect]
  20. KOGENATE FS [Suspect]
  21. KOGENATE FS [Suspect]
  22. KOGENATE FS [Suspect]
  23. KOGENATE FS [Suspect]
  24. KOGENATE FS [Suspect]

REACTIONS (5)
  - DRUG EFFECT DECREASED [None]
  - FACTOR VIII INHIBITION [None]
  - HAEMARTHROSIS [None]
  - HAEMATOMA [None]
  - PAIN IN EXTREMITY [None]
